FAERS Safety Report 9571583 (Version 1)
Quarter: 2013Q4

REPORT INFORMATION
  Report Type: Spontaneous
  Country: CA (occurrence: CA)
  Receive Date: 20131001
  Receipt Date: 20131001
  Transmission Date: 20140711
  Serious: Yes (Hospitalization, Other)
  Sender: FDA-Public Use
  Company Number: CA-GILEAD-2013-0084600

PATIENT
  Age: 60 Year
  Sex: Female

DRUGS (12)
  1. AMBRISENTAN [Suspect]
     Indication: PULMONARY ARTERIAL HYPERTENSION
     Dosage: 10 MG, QD
     Route: 048
     Dates: start: 20130523
  2. NEXIUM                             /01479302/ [Concomitant]
     Dosage: 40MG TWICE PER DAY
  3. VITAMIN D NOS [Concomitant]
     Dosage: 2000IU PER DAY
  4. COLACE [Concomitant]
  5. FOLIC ACID [Concomitant]
  6. IMOVANE [Concomitant]
  7. HYDROMORPH CONTIN [Concomitant]
     Dosage: 3MG TWICE PER DAY
  8. DILAUDID [Concomitant]
     Dosage: 2MG TWICE PER DAY
  9. IMURAN                             /00001501/ [Concomitant]
     Dosage: 50MG PER DAY
  10. ESTRADIOL [Concomitant]
     Dosage: 50MG WEEKLY
  11. CODEINE [Concomitant]
  12. NASONEX [Concomitant]
     Dosage: 1SPR TWICE PER DAY

REACTIONS (1)
  - Pulmonary embolism [Recovered/Resolved]
